FAERS Safety Report 9671468 (Version 1)
Quarter: 2013Q4

REPORT INFORMATION
  Report Type: Report from Study
  Country: CA (occurrence: CA)
  Receive Date: 20131106
  Receipt Date: 20131106
  Transmission Date: 20140711
  Serious: Yes (Life-Threatening, Hospitalization)
  Sender: FDA-Public Use
  Company Number: CA-B.I. PHARMACEUTICALS,INC./RIDGEFIELD-2013-BI-35691GD

PATIENT
  Age: 84 Year
  Sex: Male

DRUGS (1)
  1. PRADAXA [Suspect]
     Dosage: 110 MG
     Route: 048

REACTIONS (5)
  - Subdural haematoma [Recovered/Resolved]
  - Brain midline shift [Unknown]
  - Hemiparesis [Recovered/Resolved]
  - Headache [Unknown]
  - Fall [Unknown]
